FAERS Safety Report 5274199-1 (Version None)
Quarter: 2007Q1

REPORT INFORMATION
  Report Type: 
  Country: None (occurrence: None)
  Receive Date: 20070323
  Receipt Date: 20070315
  Transmission Date: 20070707
  Serious: Yes (Hospitalization)
  Sender: FDA-Public Use
  Company Number: US-ABBOTT-07P-163-0359452-00

PATIENT
  Sex: Female
  Weight: 80.812 kg

DRUGS (16)
  1. HUMIRA [Suspect]
     Indication: RHEUMATOID ARTHRITIS
     Route: 058
     Dates: start: 20060801
  2. HUMIRA [Suspect]
     Route: 058
     Dates: start: 20060501, end: 20060801
  3. LEFLUNOMIDE [Concomitant]
     Indication: RHEUMATOID ARTHRITIS
     Route: 048
  4. ETODOLAC [Concomitant]
     Indication: DRUG USE FOR UNKNOWN INDICATION
  5. LOTENSIN/ HYDROCHLOROTHIAZIDE [Concomitant]
     Indication: DRUG USE FOR UNKNOWN INDICATION
     Route: 048
  6. PREDNISONE [Concomitant]
     Indication: DRUG USE FOR UNKNOWN INDICATION
     Route: 048
  7. VYTORIN [Concomitant]
     Indication: DRUG USE FOR UNKNOWN INDICATION
  8. FOLIC ACID [Concomitant]
     Indication: DRUG USE FOR UNKNOWN INDICATION
  9. CALCIUM WITH VIT D AND MAGNESIUM [Concomitant]
     Indication: DRUG USE FOR UNKNOWN INDICATION
  10. MELOXICAM [Concomitant]
     Indication: DRUG USE FOR UNKNOWN INDICATION
     Route: 048
  11. HALBELASOL CREAM [Concomitant]
     Indication: PSORIASIS
     Route: 061
  12. DOVONEX TOPICAL CREAM [Concomitant]
     Indication: PSORIASIS
     Route: 061
  13. TOPICAL FOLIC ACID [Concomitant]
     Indication: DRUG USE FOR UNKNOWN INDICATION
     Route: 061
  14. TAZORAC TOPICAL CREAM [Concomitant]
     Indication: DRUG USE FOR UNKNOWN INDICATION
     Route: 061
  15. HYZAAR [Concomitant]
     Indication: DRUG USE FOR UNKNOWN INDICATION
  16. AZOREX [Concomitant]
     Indication: DRUG USE FOR UNKNOWN INDICATION

REACTIONS (12)
  - ARTHRALGIA [None]
  - CATARACT [None]
  - DIZZINESS POSTURAL [None]
  - DRUG INEFFECTIVE [None]
  - DYSLIPIDAEMIA [None]
  - FIBROMYALGIA [None]
  - INCREASED TENDENCY TO BRUISE [None]
  - NASOPHARYNGITIS [None]
  - NOCTURIA [None]
  - PALLOR [None]
  - TINNITUS [None]
  - TRANSIENT ISCHAEMIC ATTACK [None]
